FAERS Safety Report 17575799 (Version 1)
Quarter: 2020Q1

REPORT INFORMATION
  Report Type: Spontaneous
  Country: CN (occurrence: CN)
  Receive Date: 20200324
  Receipt Date: 20200324
  Transmission Date: 20200409
  Serious: Yes (Hospitalization, Other)
  Sender: FDA-Public Use
  Company Number: CN-PFIZER INC-2020122985

PATIENT
  Age: 48 Year
  Sex: Male
  Weight: 60 kg

DRUGS (5)
  1. ASPIRIN (E.C.) [Concomitant]
     Active Substance: ASPIRIN
     Indication: ANTIPLATELET THERAPY
     Dosage: 0.1 G, 1X/DAY
     Route: 048
     Dates: start: 20200307, end: 20200314
  2. NICERGOLINE [Concomitant]
     Active Substance: NICERGOLINE
     Indication: ANGIOPATHY
     Dosage: 4 MG, 2X/DAY
     Route: 041
     Dates: start: 20200307, end: 20200314
  3. LIPITOR [Suspect]
     Active Substance: ATORVASTATIN CALCIUM
     Indication: PLAQUE SHIFT
     Dosage: 20 MG, 1X/DAY
     Route: 048
     Dates: start: 20200307, end: 20200314
  4. TIZANIDINE HYDROCHLORIDE. [Concomitant]
     Active Substance: TIZANIDINE HYDROCHLORIDE
     Indication: CEREBROVASCULAR ACCIDENT
     Dosage: 2 MG, 3X/DAY
     Route: 048
     Dates: start: 20200307, end: 20200314
  5. SIBELIUM [FLUNARIZINE DIHYDROCHLORIDE] [Concomitant]
     Active Substance: FLUNARIZINE HYDROCHLORIDE
     Indication: VERTIGO
     Dosage: 5 MG, 1X/DAY
     Route: 048
     Dates: start: 20200307, end: 20200314

REACTIONS (4)
  - Chronic hepatitis B [Unknown]
  - Condition aggravated [Recovering/Resolving]
  - Blood bilirubin increased [Recovering/Resolving]
  - Liver function test abnormal [Recovering/Resolving]

NARRATIVE: CASE EVENT DATE: 20200314
